FAERS Safety Report 18067751 (Version 1)
Quarter: 2020Q3

REPORT INFORMATION
  Report Type: Spontaneous
  Country: US (occurrence: US)
  Receive Date: 20200724
  Receipt Date: 20200724
  Transmission Date: 20201103
  Serious: No
  Sender: FDA-Public Use
  Company Number: US-SA-2020SA189175

PATIENT

DRUGS (1)
  1. ZANTAC 150 (RANITIDINE HYDROCHLORIDE) [Suspect]
     Active Substance: RANITIDINE HYDROCHLORIDE
     Indication: GASTROOESOPHAGEAL REFLUX DISEASE
     Dosage: UNK

REACTIONS (7)
  - Cholecystectomy [Unknown]
  - Weight decreased [Unknown]
  - Unevaluable event [Unknown]
  - Condition aggravated [Unknown]
  - Heart rate abnormal [Unknown]
  - Gastrooesophageal reflux disease [Unknown]
  - Anxiety [Unknown]
